FAERS Safety Report 10020925 (Version 1)
Quarter: 2014Q1

REPORT INFORMATION
  Report Type: Spontaneous
  Country: US (occurrence: None)
  Receive Date: 20140318
  Receipt Date: 20140318
  Transmission Date: 20141002
  Serious: Yes (Disabling)
  Sender: FDA-Public Use
  Company Number: None

PATIENT
  Age: 52 Year
  Sex: Male
  Weight: 115.21 kg

DRUGS (12)
  1. SPIRONOLACTONE [Suspect]
     Indication: HYPERTENSION
     Dosage: 1 PILL
     Route: 048
     Dates: start: 20130320, end: 20131106
  2. METOPROLOL TARTRATE [Concomitant]
  3. AMLODIPINE BESYLATE [Concomitant]
  4. TRAZODONE [Concomitant]
  5. METFORMIN [Concomitant]
  6. CRESTOR [Concomitant]
  7. FISH OIL [Concomitant]
  8. B-COMPLEX [Concomitant]
  9. POTASSIUM GLUCONATE [Concomitant]
  10. VITAMIN A [Concomitant]
  11. VITAMIN D-3 [Concomitant]
  12. VITAMIN B-12 [Concomitant]

REACTIONS (5)
  - Gynaecomastia [None]
  - Abdominal distension [None]
  - Testicular pain [None]
  - Local swelling [None]
  - Local swelling [None]
